FAERS Safety Report 9205770 (Version 2)
Quarter: 2013Q2

REPORT INFORMATION
  Report Type: Spontaneous
  Country: JP (occurrence: JP)
  Receive Date: 20130403
  Receipt Date: 20130408
  Transmission Date: 20140414
  Serious: Yes (Other)
  Sender: FDA-Public Use
  Company Number: JP-009507513-1303JPN014368

PATIENT
  Sex: Female

DRUGS (2)
  1. BONALON [Suspect]
     Dosage: DAILY DOSE UNKNOWN
  2. PREDNISOLONE [Concomitant]
     Dosage: DAILY DOSAGE UNKNOWN (FORMULATION POR)
     Route: 048

REACTIONS (2)
  - Intramedullary rod insertion [Unknown]
  - Atypical femur fracture [Unknown]
